FAERS Safety Report 7920299 (Version 2)
Quarter: 2013Q2

REPORT INFORMATION
  Report Type: Spontaneous
  Country: MX (occurrence: None)
  Receive Date: 20110404
  Receipt Date: 20130613
  Transmission Date: 20140414
  Serious: Yes (Other)
  Sender: FDA-Public Use
  Company Number: ENTC2011-0100

PATIENT
  Age: 66 Year
  Sex: Male

DRUGS (1)
  1. STALEVO [Suspect]
     Indication: PARKINSON^S DISEASE
     Dosage: 3 TABLETS (100/25/200 MG) PER DAY ORAL
     Route: 048
     Dates: end: 201102

REACTIONS (6)
  - VISUAL IMPAIRMENT [None]
  - HEARING IMPAIRED [None]
  - TREMOR [None]
  - GAIT DISTURBANCE [None]
  - HEADACHE [None]
  - Tremor [None]
